FAERS Safety Report 23932163 (Version 1)
Quarter: 2024Q2

REPORT INFORMATION
  Report Type: Spontaneous
  Country: HR (occurrence: HR)
  Receive Date: 20240603
  Receipt Date: 20240603
  Transmission Date: 20240716
  Serious: Yes (Other)
  Sender: FDA-Public Use
  Company Number: HR-BAYER-2024A078341

PATIENT
  Age: 59 Year
  Sex: Male

DRUGS (12)
  1. FINERENONE [Suspect]
     Active Substance: FINERENONE
     Dosage: 10 MG
  2. INSULIN GLARGINE [Concomitant]
     Active Substance: INSULIN GLARGINE
     Dosage: 22 IU
  3. GLIQUIDONE [Concomitant]
     Active Substance: GLIQUIDONE
  4. NEBIVOLOL [Concomitant]
     Active Substance: NEBIVOLOL
     Dosage: 2.5 MG
  5. OLMESARTAN [Concomitant]
     Active Substance: OLMESARTAN
     Dosage: 40 MG
  6. CHLORTHALIDONE [Concomitant]
     Active Substance: CHLORTHALIDONE
     Dosage: 12.5 MG
  7. LERCANIDIPINE [Concomitant]
     Active Substance: LERCANIDIPINE
     Dosage: 10 MG
  8. THIOCTIC ACID [Concomitant]
     Active Substance: THIOCTIC ACID
     Dosage: 600 MG
  9. ATORVASTATIN [Concomitant]
     Active Substance: ATORVASTATIN
     Dosage: 40 MG
  10. DAPAGLIFLOZIN [Concomitant]
     Active Substance: DAPAGLIFLOZIN
     Dosage: 10 MG
  11. MOXONIDINE [Concomitant]
     Active Substance: MOXONIDINE
     Dosage: 0.4 MG
  12. Arb [Concomitant]

REACTIONS (2)
  - Proteinuria [Recovering/Resolving]
  - Glomerular filtration rate decreased [None]
